FAERS Safety Report 22860156 (Version 4)
Quarter: 2024Q2

REPORT INFORMATION
  Report Type: Spontaneous
  Country: US (occurrence: US)
  Receive Date: 20230824
  Receipt Date: 20240605
  Transmission Date: 20240715
  Serious: No
  Sender: FDA-Public Use
  Company Number: US-SA-SAC20230821000286

PATIENT
  Age: 6 Year
  Sex: Male

DRUGS (4)
  1. ALPROLIX [Suspect]
     Active Substance: EFTRENONACOG ALFA
     Indication: Haemorrhage
     Dosage: 531/1062 U
     Route: 065
  2. ALPROLIX [Suspect]
     Active Substance: EFTRENONACOG ALFA
     Indication: Haemorrhage
     Dosage: 531/1062 U
     Route: 065
  3. ALPROLIX [Suspect]
     Active Substance: EFTRENONACOG ALFA
     Dosage: 600/1200 U (+/-10%) EVERY 48 TO 72 AS NEEDED (PRN)
     Route: 042
  4. ALPROLIX [Suspect]
     Active Substance: EFTRENONACOG ALFA
     Dosage: 600/1200 U (+/-10%) EVERY 48 TO 72 AS NEEDED (PRN)
     Route: 042

REACTIONS (6)
  - Fall [Unknown]
  - Head injury [Unknown]
  - Head injury [Unknown]
  - Swelling [Unknown]
  - Contusion [Unknown]
  - Injury [Unknown]

NARRATIVE: CASE EVENT DATE: 20230816
